FAERS Safety Report 4342846-4 (Version None)
Quarter: 2004Q2

REPORT INFORMATION
  Report Type: 
  Country: None (occurrence: None)
  Receive Date: 20040420
  Receipt Date: 20040420
  Transmission Date: 20050107
  Serious: No
  Sender: FDA-Public Use
  Company Number: None

PATIENT
  Sex: Male
  Weight: 72.5755 kg

DRUGS (4)
  1. CLOZARIL [Suspect]
     Indication: SCHIZOPHRENIA, PARANOID TYPE
     Dosage: 300 MG HS ORAL
     Route: 048
     Dates: start: 20040109, end: 20040316
  2. CLOTRIMAZOLE [Concomitant]
  3. RISPERIDONE [Concomitant]
  4. LAC-HYDRIN LOTION [Concomitant]

REACTIONS (1)
  - NEUTROPHIL COUNT DECREASED [None]
